FAERS Safety Report 9696550 (Version 1)
Quarter: 2013Q4

REPORT INFORMATION
  Report Type: Spontaneous
  Country: US (occurrence: US)
  Receive Date: 20131119
  Receipt Date: 20131119
  Transmission Date: 20140711
  Serious: Yes (Other)
  Sender: FDA-Public Use
  Company Number: US-BAXTER-2013BAX045693

PATIENT
  Age: 3 Year
  Sex: Female

DRUGS (1)
  1. GAMMAGARD LIQUID [Suspect]
     Indication: GUILLAIN-BARRE SYNDROME
     Route: 042

REACTIONS (1)
  - Therapeutic response decreased [Not Recovered/Not Resolved]
